FAERS Safety Report 5698278-X (Version None)
Quarter: 2008Q2

REPORT INFORMATION
  Report Type: 
  Country: None (occurrence: None)
  Receive Date: 20080408
  Receipt Date: 20080311
  Transmission Date: 20081010
  Serious: No
  Sender: FDA-Public Use
  Company Number: US-BOEHRINGER INGELHEIM GMBH, GERMANY-2008-BP-02562BP

PATIENT
  Sex: Male

DRUGS (11)
  1. SPIRIVA [Suspect]
     Indication: CHRONIC OBSTRUCTIVE PULMONARY DISEASE
     Route: 055
     Dates: start: 20080118
  2. SPIRIVA [Suspect]
     Indication: EMPHYSEMA
  3. CHLORHEXIDINE GLUCONATE RINSE 12% [Concomitant]
  4. ZOCOR [Concomitant]
     Route: 048
  5. TOPROL-XL [Concomitant]
     Route: 048
  6. WARFARIN SODIUM [Concomitant]
     Route: 048
  7. AMIODARONE HCL [Concomitant]
     Route: 048
  8. ASPIRIN [Concomitant]
     Route: 048
  9. CLARITIN [Concomitant]
     Route: 048
  10. ALBUTEROL [Concomitant]
     Route: 055
  11. NASACORT [Concomitant]
     Route: 045

REACTIONS (1)
  - TONGUE DISCOLOURATION [None]
